FAERS Safety Report 7906998-9 (Version None)
Quarter: 2011Q4

REPORT INFORMATION
  Report Type: 
  Country: None (occurrence: None)
  Receive Date: 20111110
  Receipt Date: 20111109
  Transmission Date: 20120403
  Serious: Yes (Other)
  Sender: FDA-Public Use
  Company Number: US-PFIZER INC-2011274866

PATIENT
  Sex: Female
  Weight: 88.435 kg

DRUGS (14)
  1. HYDROCHLOROTHIAZIDE [Concomitant]
     Indication: HYPERTENSION
     Dosage: 50 MG, 1X/DAY
  2. KLOR-CON [Concomitant]
     Dosage: UNK, 1X/DAY
  3. VERAPAMIL [Concomitant]
     Dosage: 120 MG, 2X/DAY
  4. PRAMIPEXOLE [Concomitant]
     Dosage: UNK, 1X/DAY
  5. PRILOSEC [Concomitant]
     Dosage: 20 MG, 1X/DAY
  6. PRAVASTATIN [Concomitant]
     Dosage: UNK
  7. CELEBREX [Suspect]
     Indication: ARTHRITIS
     Dosage: 200 MG, 1X/DAY
     Route: 048
     Dates: start: 20111102, end: 20111108
  8. METFORMIN [Concomitant]
     Indication: DIABETES MELLITUS
     Dosage: 500 MG, 2X/DAY
  9. LISINOPRIL [Concomitant]
     Indication: HYPERTENSION
     Dosage: 40 MG, 2X/DAY
  10. BUMETANIDE [Concomitant]
     Indication: HYPERTENSION
     Dosage: 1 MG, 1X/DAY
  11. ZANTAC [Concomitant]
     Indication: GASTRITIS
     Dosage: 150 MG, 1X/DAY
  12. GABAPENTIN [Concomitant]
     Indication: NEUROPATHY PERIPHERAL
     Dosage: 300 MG, 1X/DAY
  13. BIOTIN [Concomitant]
     Dosage: UNK
  14. PAROXETINE [Concomitant]
     Indication: DEPRESSION
     Dosage: 20 MG, 1X/DAY

REACTIONS (4)
  - MALAISE [None]
  - HYPERTENSION [None]
  - VISUAL IMPAIRMENT [None]
  - HEART RATE IRREGULAR [None]
